FAERS Safety Report 5359532-4 (Version None)
Quarter: 2007Q2

REPORT INFORMATION
  Report Type: 
  Country: None (occurrence: None)
  Receive Date: 20070615
  Receipt Date: 20070604
  Transmission Date: 20071010
  Serious: Yes (Hospitalization, Other)
  Sender: FDA-Public Use
  Company Number: US-PFIZER INC-2007047113

PATIENT
  Sex: Female
  Weight: 78.9 kg

DRUGS (10)
  1. CHANTIX [Suspect]
     Indication: EX-SMOKER
     Dates: start: 20070301, end: 20070101
  2. ZOLOFT [Suspect]
     Indication: DEPRESSION
  3. XANAX [Suspect]
     Indication: ANXIETY
  4. CARDURA [Suspect]
     Indication: HYPERTENSION
     Dates: start: 20070101, end: 20070101
  5. ANTIHYPERTENSIVES [Suspect]
     Indication: HYPERTENSION
  6. MORPHINE [Suspect]
     Indication: PROCEDURAL PAIN
     Route: 042
     Dates: start: 20070525, end: 20070501
  7. ACETYLSALICYLIC ACID SRT [Concomitant]
  8. ALL OTHER THERAPEUTIC PRODUCTS [Concomitant]
  9. LUNESTA [Concomitant]
     Indication: SLEEP DISORDER
  10. OXYCODONE HCL [Concomitant]

REACTIONS (17)
  - ANXIETY [None]
  - AORTIC ANEURYSM [None]
  - AORTIC OCCLUSION [None]
  - ARTERIAL OCCLUSIVE DISEASE [None]
  - BLOOD PRESSURE FLUCTUATION [None]
  - BLOOD PRESSURE INCREASED [None]
  - DELUSION [None]
  - HALLUCINATION, AUDITORY [None]
  - HOT FLUSH [None]
  - INSOMNIA [None]
  - MENTAL IMPAIRMENT [None]
  - PANIC ATTACK [None]
  - PROCEDURAL PAIN [None]
  - RENAL CYST [None]
  - RENAL MASS [None]
  - WEIGHT FLUCTUATION [None]
  - WEIGHT INCREASED [None]
